FAERS Safety Report 21038906 (Version 3)
Quarter: 2022Q3

REPORT INFORMATION
  Report Type: Spontaneous
  Country: CA (occurrence: None)
  Receive Date: 20220704
  Receipt Date: 20220913
  Transmission Date: 20221026
  Serious: Yes (Other)
  Sender: FDA-Public Use
  Company Number: CA-PFIZER INC-202200907975

PATIENT
  Age: 61 Year
  Sex: Female

DRUGS (3)
  1. METHOTREXATE [Suspect]
     Active Substance: METHOTREXATE
     Indication: Product used for unknown indication
     Route: 065
     Dates: start: 2014
  2. LEUCOVORIN [Concomitant]
     Active Substance: LEUCOVORIN
     Route: 065
     Dates: start: 2014
  3. ORENCIA [Concomitant]
     Active Substance: ABATACEPT
     Dosage: STATUS OF THIS TREATMENT ONCE INFLECTRA IS STARTED TO BE CONFIRMED BY MD
     Route: 065
     Dates: start: 2014

REACTIONS (3)
  - Crohn^s disease [Unknown]
  - Abscess [Unknown]
  - Middle insomnia [Unknown]
